FAERS Safety Report 7390939-X (Version None)
Quarter: 2011Q2

REPORT INFORMATION
  Report Type: 
  Country: None (occurrence: None)
  Receive Date: 20110404
  Receipt Date: 20110321
  Transmission Date: 20111010
  Serious: Yes (Hospitalization)
  Sender: FDA-Public Use
  Company Number: US-CELGENEUS-163-21880-11013052

PATIENT
  Sex: Male
  Weight: 71.4 kg

DRUGS (20)
  1. DEXAMETHASONE [Suspect]
     Indication: AMYLOIDOSIS
     Dosage: 40 MILLIGRAM
     Route: 065
     Dates: start: 20091002, end: 20100107
  2. FOLIC ACID [Concomitant]
     Dosage: 1 MILLIGRAM
     Route: 065
  3. AMIODARONE [Concomitant]
     Dosage: 100 MILLIGRAM
     Route: 065
  4. LACTULOSE [Concomitant]
     Indication: CONSTIPATION
     Dosage: 6 TEASPOON
     Route: 065
  5. POTASSIUM [Concomitant]
     Dosage: 10 MILLIEQUIVALENTS
     Route: 065
  6. REVLIMID [Suspect]
     Indication: AMYLOIDOSIS
     Dosage: 10 MILLIGRAM
     Route: 048
     Dates: start: 20091002, end: 20100107
  7. MELPHALAN [Suspect]
     Indication: AMYLOIDOSIS
     Dosage: 12 MILLIGRAM
     Route: 065
     Dates: start: 20091002, end: 20100107
  8. HYDROCHLOROTHIAZIDE [Suspect]
     Dosage: 25 MILLIGRAM
     Route: 065
  9. SENNA [Concomitant]
     Indication: CONSTIPATION
     Dosage: 3 TABLET
     Route: 048
  10. DIURETICS [Concomitant]
     Indication: CARDIOMYOPATHY
     Route: 065
  11. ULTRAM [Concomitant]
     Dosage: 12 MILLIGRAM
     Route: 065
     Dates: start: 20091229
  12. INSPRA [Concomitant]
     Indication: CARDIOMYOPATHY
     Dosage: 75MG-50MG-25MG
     Route: 065
  13. INSPRA [Concomitant]
     Indication: LEFT VENTRICULAR DYSFUNCTION
     Route: 065
  14. INSPRA [Concomitant]
     Indication: ASCITES
  15. COUMADIN [Concomitant]
     Dosage: 2.5-5MG
     Route: 065
  16. LEVOTHYROXINE SODIUM [Concomitant]
     Dosage: 50 MICROGRAM
     Route: 065
  17. MIRALAX [Concomitant]
     Indication: CONSTIPATION
     Dosage: 17 GRAM
     Route: 065
  18. LASIX [Suspect]
     Dosage: 80 MILLIGRAM
     Route: 065
  19. DIURETICS [Concomitant]
     Indication: LEFT VENTRICULAR DYSFUNCTION
     Route: 065
  20. ASPIRIN [Concomitant]
     Dosage: 81 MILLIGRAM
     Route: 065

REACTIONS (2)
  - ILEUS [None]
  - DEHYDRATION [None]
